FAERS Safety Report 13819343 (Version 1)
Quarter: 2017Q3

REPORT INFORMATION
  Report Type: Spontaneous
  Country: US (occurrence: US)
  Receive Date: 20170731
  Receipt Date: 20170731
  Transmission Date: 20171127
  Serious: Yes (Hospitalization)
  Sender: FDA-Public Use
  Company Number: None

PATIENT
  Age: 64 Year
  Sex: Female
  Weight: 113.8 kg

DRUGS (1)
  1. LITHIUM CARBONATE ER [Suspect]
     Active Substance: LITHIUM CARBONATE
     Indication: BIPOLAR DISORDER
     Route: 048

REACTIONS (11)
  - Asthenia [None]
  - Dehydration [None]
  - Toxicity to various agents [None]
  - Urinary tract infection [None]
  - Eating disorder [None]
  - Computerised tomogram abnormal [None]
  - Proteus test positive [None]
  - Diarrhoea [None]
  - Confusional state [None]
  - Antipsychotic drug level increased [None]
  - Impaired self-care [None]

NARRATIVE: CASE EVENT DATE: 20170714
